FAERS Safety Report 5011760-3 (Version None)
Quarter: 2006Q2

REPORT INFORMATION
  Report Type: 
  Country: None (occurrence: None)
  Receive Date: 20060526
  Receipt Date: 20060515
  Transmission Date: 20061013
  Serious: Yes (Life-Threatening, Hospitalization, Disabling)
  Sender: FDA-Public Use
  Company Number: US-JNJFOC-20051004456

PATIENT
  Sex: Female
  Weight: 11.34 kg

DRUGS (9)
  1. CHILDREN'S MOTRIN [Suspect]
     Route: 048
  2. CHILDREN'S MOTRIN [Suspect]
     Dosage: 100 MG Q4H PRN (2 DOSES)
     Route: 048
  3. TYLENOL (GELTAB) [Concomitant]
  4. GLY-OXIDE [Concomitant]
  5. BENADRYL [Concomitant]
  6. CALAMINE [Concomitant]
  7. AVEENO [Concomitant]
  8. AVEENO [Concomitant]
  9. ZOVIRAX [Concomitant]

REACTIONS (13)
  - ANAEMIA [None]
  - BLEPHARITIS [None]
  - BLINDNESS [None]
  - BLINDNESS UNILATERAL [None]
  - CORNEAL TRANSPLANT [None]
  - ENTEROCOCCAL BACTERAEMIA [None]
  - EYE INFECTION STAPHYLOCOCCAL [None]
  - LENS IMPLANT [None]
  - PSEUDOMONAL SEPSIS [None]
  - RESPIRATORY FAILURE [None]
  - STEVENS-JOHNSON SYNDROME [None]
  - THERAPY NON-RESPONDER [None]
  - THROMBOCYTOPENIA [None]
